FAERS Safety Report 18813651 (Version 1)
Quarter: 2021Q1

REPORT INFORMATION
  Report Type: Spontaneous
  Country: IT (occurrence: IT)
  Receive Date: 20210201
  Receipt Date: 20210201
  Transmission Date: 20210419
  Serious: Yes (Death, Hospitalization, Other)
  Sender: FDA-Public Use
  Company Number: IT-CELLTRION INC.-2021IT000902

PATIENT

DRUGS (16)
  1. RITUXIMAB (UNKNOWN) [Suspect]
     Active Substance: RITUXIMAB
     Indication: NON-HODGKIN^S LYMPHOMA
     Dosage: 8 CYCLES OF RCHOP
  2. RITUXIMAB (UNKNOWN) [Suspect]
     Active Substance: RITUXIMAB
     Dosage: 6 CYCLES OF RITUXIMAB, ALONG WITH BENDAMUSTINE
  3. BENDAMUSTINE [Suspect]
     Active Substance: BENDAMUSTINE
     Indication: DIFFUSE LARGE B-CELL LYMPHOMA
     Dosage: 6 CYCLES
  4. ICE [CARBOPLATIN;ETOPOSIDE;IFOSFAMIDE] [Suspect]
     Active Substance: CARBOPLATIN\ETOPOSIDE\IFOSFAMIDE
     Indication: DIFFUSE LARGE B-CELL LYMPHOMA
  5. PIXANTRONE [Suspect]
     Active Substance: PIXANTRONE
     Indication: DIFFUSE LARGE B-CELL LYMPHOMA
     Dosage: THE PATIENT WAS TREATED WITH 6 CYCLES (UNTIL 10 JUL 2019)
  6. COMP (CYCLOPHOSPHAMIDE;DOXORUBICIN;PREDNISONE;VINCRISTINE) [Suspect]
     Active Substance: CYCLOPHOSPHAMIDE\DOXORUBICIN HYDROCHLORIDE\PREDNISOLONE\VINCRISTINE
     Indication: DIFFUSE LARGE B-CELL LYMPHOMA
     Dosage: TREATED WITH 6 CYCLES OF RCOMP
  7. RITUXIMAB (UNKNOWN) [Suspect]
     Active Substance: RITUXIMAB
     Dosage: AS PART OF R?ICE TREATMENT
  8. RITUXIMAB (UNKNOWN) [Suspect]
     Active Substance: RITUXIMAB
     Indication: DIFFUSE LARGE B-CELL LYMPHOMA
     Dosage: NEW TREATMENT SCHEDULE: RCOMP, 6 CYCLES
  9. CHOP [Suspect]
     Active Substance: CYCLOPHOSPHAMIDE\DOXORUBICIN\PREDNISONE\VINCRISTINE
     Indication: NON-HODGKIN^S LYMPHOMA
     Dosage: 8 CYCLES OF RCHOP
  10. LAMIVUDINE. [Concomitant]
     Active Substance: LAMIVUDINE
     Indication: PROPHYLAXIS
     Dosage: 100 MG/ DAY
  11. OXALIPLATIN. [Suspect]
     Active Substance: OXALIPLATIN
     Indication: DIFFUSE LARGE B-CELL LYMPHOMA
     Dosage: AS PART OF OXALI?DHAP THERAPY
  12. ALLOPURINOL. [Concomitant]
     Active Substance: ALLOPURINOL
     Indication: PROPHYLAXIS
     Dosage: 300 MG, DAILY, BEFORE STARTING AND DURING VENTOCLAX THERAPY
  13. DHAP [Suspect]
     Active Substance: CISPLATIN\CYTARABINE\DEXAMETHASONE
     Indication: DIFFUSE LARGE B-CELL LYMPHOMA
  14. RITUXIMAB (UNKNOWN) [Suspect]
     Active Substance: RITUXIMAB
     Dosage: AS PART OF R?OXALI DHAP TREATMENT
  15. ITRACONAZOLE. [Concomitant]
     Active Substance: ITRACONAZOLE
     Indication: PROPHYLAXIS
     Dosage: 1 SCOOP ORALLY TWICE A DAY
     Route: 048
  16. VENETOCLAX. [Suspect]
     Active Substance: VENETOCLAX
     Indication: DIFFUSE LARGE B-CELL LYMPHOMA
     Dosage: 100 MG PER WEEK UNTIL 1,200 MG AND WITH A 1?WEEK SUSPENSION
     Route: 048
     Dates: start: 20200113

REACTIONS (8)
  - Thrombocytopenia [Unknown]
  - Leukopenia [Unknown]
  - Drug ineffective [Unknown]
  - Myelosuppression [Unknown]
  - Sepsis [Fatal]
  - Condition aggravated [Unknown]
  - Neutropenia [Unknown]
  - Disease recurrence [Unknown]

NARRATIVE: CASE EVENT DATE: 202006
